FAERS Safety Report 18192247 (Version 2)
Quarter: 2020Q3

REPORT INFORMATION
  Report Type: Spontaneous
  Country: US (occurrence: US)
  Receive Date: 20200825
  Receipt Date: 20200904
  Transmission Date: 20201103
  Serious: No
  Sender: FDA-Public Use
  Company Number: US-PFIZER INC-2020327894

PATIENT
  Age: 87 Year
  Sex: Female
  Weight: 69.39 kg

DRUGS (1)
  1. INSPRA [Suspect]
     Active Substance: EPLERENONE
     Dosage: UNK

REACTIONS (3)
  - Visual impairment [Unknown]
  - Lacrimation increased [Unknown]
  - Generalised oedema [Unknown]
